FAERS Safety Report 23931435 (Version 1)
Quarter: 2024Q2

REPORT INFORMATION
  Report Type: Spontaneous
  Country: US (occurrence: US)
  Receive Date: 20240603
  Receipt Date: 20240603
  Transmission Date: 20240716
  Serious: No
  Sender: FDA-Public Use
  Company Number: US-ELI_LILLY_AND_COMPANY-US202405016521

PATIENT
  Age: 42 Year
  Sex: Female

DRUGS (3)
  1. TALTZ [Suspect]
     Active Substance: IXEKIZUMAB
     Indication: Psoriasis
     Dosage: UNK UNK, UNKNOWN
     Route: 065
  2. TALTZ [Suspect]
     Active Substance: IXEKIZUMAB
     Indication: Ankylosing spondylitis
  3. TALTZ [Suspect]
     Active Substance: IXEKIZUMAB
     Indication: Sacroiliitis

REACTIONS (6)
  - Mouth ulceration [Unknown]
  - Oesophageal ulcer [Unknown]
  - Tongue ulceration [Unknown]
  - Herpangina [Unknown]
  - Candida infection [Unknown]
  - Herpes zoster [Unknown]
